FAERS Safety Report 8482050-1 (Version None)
Quarter: 2012Q3

REPORT INFORMATION
  Report Type: 
  Country: None (occurrence: None)
  Receive Date: 20120702
  Receipt Date: 20120628
  Transmission Date: 20120928
  Serious: Yes (Other)
  Sender: FDA-Public Use
  Company Number: PHHY2012DE055938

PATIENT
  Age: 11 Year
  Sex: Male

DRUGS (1)
  1. CERTICAN [Suspect]
     Indication: PROPHYLAXIS AGAINST TRANSPLANT REJECTION
     Dosage: 1-1.5MG/ DAILY
     Route: 048
     Dates: start: 20120601

REACTIONS (6)
  - ORAL PAIN [None]
  - FLUID INTAKE REDUCED [None]
  - MUCOSAL INFLAMMATION [None]
  - ORAL DISCOMFORT [None]
  - HYPOPHAGIA [None]
  - APHTHOUS STOMATITIS [None]
